FAERS Safety Report 16918578 (Version 1)
Quarter: 2019Q4

REPORT INFORMATION
  Report Type: Spontaneous
  Country: US (occurrence: US)
  Receive Date: 20191015
  Receipt Date: 20191015
  Transmission Date: 20200122
  Serious: Yes (Death, Hospitalization, Other)
  Sender: FDA-Public Use
  Company Number: US-MYLANLABS-2019M1097173

PATIENT
  Sex: Male

DRUGS (10)
  1. PREDNISONE MYLAN [Suspect]
     Active Substance: PREDNISONE
     Dosage: 50 MILLIGRAM, QD
     Route: 065
  2. IMMUNE GLOBULIN (IMMUNOGLOBULINS NOS) [Suspect]
     Active Substance: IMMUNE GLOBULIN NOS
     Indication: CHRONIC GRAFT VERSUS HOST DISEASE
     Dosage: 15 GRAM, MONTHLY
     Route: 042
     Dates: start: 201606
  3. RITUXIMAB. [Suspect]
     Active Substance: RITUXIMAB
     Indication: CHRONIC LYMPHOCYTIC LEUKAEMIA
     Dosage: RECEIVED 6 CYCLES FOR CLL
     Route: 065
  4. FLUDARABINE [Suspect]
     Active Substance: FLUDARABINE PHOSPHATE
     Indication: CHRONIC LYMPHOCYTIC LEUKAEMIA
     Dosage: RECEIVED 6 CYCLES FOR CLL. ALSO RECEIVED WITH LOW-DOSE TOTAL BODY IRRADIATION BEFORE PBSC TRANSPLANT
     Route: 065
  5. CICLOSPORIN [Suspect]
     Active Substance: CYCLOSPORINE
     Indication: PERIPHERAL T-CELL LYMPHOMA UNSPECIFIED
     Route: 065
     Dates: start: 2011
  6. IBRUTINIB [Suspect]
     Active Substance: IBRUTINIB
     Indication: CHRONIC GRAFT VERSUS HOST DISEASE
     Route: 065
     Dates: start: 201611
  7. IBRUTINIB [Suspect]
     Active Substance: IBRUTINIB
     Indication: MYOPATHY
     Dosage: 320 MILLIGRAM, QD
     Route: 065
  8. IMMUNE GLOBULIN (IMMUNOGLOBULINS NOS) [Suspect]
     Active Substance: IMMUNE GLOBULIN NOS
     Indication: MYOPATHY
     Dosage: DOSE INCREASED
     Route: 042
     Dates: start: 201609, end: 201612
  9. URSODEOXYCHOLIC ACID [Suspect]
     Active Substance: URSODIOL
     Indication: CHRONIC GRAFT VERSUS HOST DISEASE
     Route: 065
     Dates: start: 2014
  10. PREDNISONE MYLAN [Suspect]
     Active Substance: PREDNISONE
     Indication: CHRONIC GRAFT VERSUS HOST DISEASE
     Route: 065
     Dates: start: 2014

REACTIONS (6)
  - Transaminases increased [Unknown]
  - Bacteraemia [Fatal]
  - Hypoxia [Fatal]
  - Infection [Fatal]
  - Respiratory disorder [Fatal]
  - Drug ineffective [Unknown]

NARRATIVE: CASE EVENT DATE: 2018
